FAERS Safety Report 7266143-2 (Version None)
Quarter: 2011Q1

REPORT INFORMATION
  Report Type: 
  Country: None (occurrence: None)
  Receive Date: 20110131
  Receipt Date: 20110120
  Transmission Date: 20110831
  Serious: Yes (Hospitalization)
  Sender: FDA-Public Use
  Company Number: FR-ASTRAZENECA-2010SE51556

PATIENT
  Age: 88 Year
  Sex: Female
  Weight: 52 kg

DRUGS (10)
  1. GLUCOR [Concomitant]
     Indication: TYPE 2 DIABETES MELLITUS
     Route: 048
  2. BRONCHOKOD [Concomitant]
     Route: 048
  3. SPIRIVA [Concomitant]
     Indication: ASTHMA
     Route: 055
  4. CRESTOR [Suspect]
     Route: 048
     Dates: start: 20101014, end: 20101015
  5. BECOTIDE [Concomitant]
     Indication: ASTHMA
     Route: 055
  6. APROVEL [Concomitant]
     Indication: HYPERTENSION
     Route: 048
  7. KESTIN [Concomitant]
     Route: 048
  8. DAFALGAN [Concomitant]
     Route: 048
  9. MINIDIAB [Concomitant]
     Indication: TYPE 2 DIABETES MELLITUS
     Route: 048
  10. IBUPROFEN [Concomitant]
     Route: 048

REACTIONS (1)
  - ISCHAEMIC STROKE [None]
